FAERS Safety Report 4359763-6 (Version None)
Quarter: 2004Q2

REPORT INFORMATION
  Report Type: 
  Country: None (occurrence: None)
  Receive Date: 20040518
  Receipt Date: 20040510
  Transmission Date: 20050107
  Serious: Yes (Other)
  Sender: FDA-Public Use
  Company Number: US-JNJFOC-20030902120

PATIENT
  Age: 50 Year
  Sex: Female
  Weight: 81.65 kg

DRUGS (14)
  1. ORTHO EVRA [Suspect]
     Route: 062
     Dates: start: 20030727
  2. ORTHO EVRA [Suspect]
     Indication: MENORRHAGIA
     Route: 062
     Dates: start: 20030727
  3. CALCIUM +D [Concomitant]
  4. MAGNESIUM [Concomitant]
  5. MULTI-VITAMIN [Concomitant]
  6. MULTI-VITAMIN [Concomitant]
  7. MULTI-VITAMIN [Concomitant]
  8. MULTI-VITAMIN [Concomitant]
  9. MULTI-VITAMIN [Concomitant]
  10. MULTI-VITAMIN [Concomitant]
  11. MULTI-VITAMIN [Concomitant]
  12. MULTI-VITAMIN [Concomitant]
  13. ALBUTEROL [Concomitant]
  14. FERROUS SULFATE TAB [Concomitant]

REACTIONS (11)
  - ADENOMYOSIS [None]
  - ARRHYTHMIA [None]
  - ATRIAL TACHYCARDIA [None]
  - CYSTOCELE [None]
  - DYSFUNCTIONAL UTERINE BLEEDING [None]
  - FATIGUE [None]
  - HAEMATOCRIT DECREASED [None]
  - HAEMOGLOBIN DECREASED [None]
  - MENORRHAGIA [None]
  - RECTOCELE [None]
  - UTERINE LEIOMYOMA [None]
